FAERS Safety Report 20560440 (Version 1)
Quarter: 2022Q1

REPORT INFORMATION
  Report Type: Spontaneous
  Country: FR (occurrence: FR)
  Receive Date: 20220307
  Receipt Date: 20220307
  Transmission Date: 20220423
  Serious: Yes (Other)
  Sender: FDA-Public Use
  Company Number: None

PATIENT
  Age: 49 Year
  Sex: Female

DRUGS (2)
  1. PROTOPIC [Suspect]
     Active Substance: TACROLIMUS
     Indication: Cutaneous lupus erythematosus
     Dosage: 1 APPLICATION IN EVENING
     Route: 061
     Dates: start: 202110, end: 202202
  2. PROTOPIC [Suspect]
     Active Substance: TACROLIMUS
     Indication: Cutaneous lupus erythematosus
     Dosage: 1 APPLICATION IN EVENING
     Route: 061
     Dates: start: 202110, end: 202202

REACTIONS (2)
  - Product use in unapproved indication [Unknown]
  - Alcohol intolerance [Recovered/Resolved]

NARRATIVE: CASE EVENT DATE: 20211103
